FAERS Safety Report 4709392-7 (Version None)
Quarter: 2005Q3

REPORT INFORMATION
  Report Type: 
  Country: None (occurrence: None)
  Receive Date: 20050708
  Receipt Date: 20050627
  Transmission Date: 20060218
  Serious: Yes (Other)
  Sender: FDA-Public Use
  Company Number: US-NOVOPROD-245134

PATIENT
  Sex: Female

DRUGS (3)
  1. NORDITROPIN CARTRIDGES [Suspect]
     Indication: ILL-DEFINED DISORDER
     Dosage: 2 MG, QD
     Dates: start: 20021004, end: 20040708
  2. CONCERTA [Concomitant]
     Indication: ILL-DEFINED DISORDER
     Dosage: UNKNOWN
  3. LUPRON [Concomitant]
     Indication: ILL-DEFINED DISORDER

REACTIONS (1)
  - SCOLIOSIS [None]
